FAERS Safety Report 21001772 (Version 2)
Quarter: 2022Q4

REPORT INFORMATION
  Report Type: Spontaneous
  Country: US (occurrence: US)
  Receive Date: 20220624
  Receipt Date: 20221101
  Transmission Date: 20230113
  Serious: No
  Sender: FDA-Public Use
  Company Number: US-BioHaven Pharmaceuticals-2022BHV001176

PATIENT
  Age: 29 Year
  Sex: Male
  Weight: 127.12 kg

DRUGS (7)
  1. NURTEC ODT [Suspect]
     Active Substance: RIMEGEPANT SULFATE
     Indication: Migraine
     Dosage: ONE TABLET, STARTED AT 2:30AM 20-APR-2022
     Route: 060
     Dates: start: 20220420
  2. DIASTAT [Concomitant]
     Active Substance: DIAZEPAM
     Indication: Seizure
     Route: 054
  3. DIASTAT [Concomitant]
     Active Substance: DIAZEPAM
     Route: 045
  4. ATIVAN [Concomitant]
     Active Substance: LORAZEPAM
     Indication: Aura
     Route: 065
  5. KEPPRA [Concomitant]
     Active Substance: LEVETIRACETAM
     Indication: Seizure
     Route: 065
  6. DILANTIN [Concomitant]
     Active Substance: PHENYTOIN
     Indication: Seizure
     Route: 065
  7. TOPAMAX [Concomitant]
     Active Substance: TOPIRAMATE
     Indication: Seizure
     Route: 065

REACTIONS (4)
  - Therapeutic product effect incomplete [Not Recovered/Not Resolved]
  - Therapeutic product effect delayed [Unknown]
  - Eye pain [Recovered/Resolved]
  - Somnolence [Unknown]
